FAERS Safety Report 23544695 (Version 6)
Quarter: 2025Q1

REPORT INFORMATION
  Report Type: Spontaneous
  Country: US (occurrence: US)
  Receive Date: 20240220
  Receipt Date: 20250128
  Transmission Date: 20250409
  Serious: No
  Sender: PFIZER
  Company Number: US-PFIZER INC-PV202400022243

PATIENT
  Age: 67 Year
  Sex: Female
  Weight: 47.4 kg

DRUGS (3)
  1. IBRANCE [Suspect]
     Active Substance: PALBOCICLIB
     Indication: Invasive ductal breast carcinoma
     Route: 048
     Dates: start: 20230824
  2. IBRANCE [Suspect]
     Active Substance: PALBOCICLIB
     Indication: Breast cancer female
  3. LETROZOLE [Concomitant]
     Active Substance: LETROZOLE

REACTIONS (7)
  - Weight decreased [Unknown]
  - Visual impairment [Unknown]
  - Cough [Not Recovered/Not Resolved]
  - Retching [Not Recovered/Not Resolved]
  - Nausea [Recovering/Resolving]
  - Disease recurrence [Recovering/Resolving]
  - Vomiting [Recovering/Resolving]
